FAERS Safety Report 6824977-X (Version None)
Quarter: 2010Q3

REPORT INFORMATION
  Report Type: 
  Country: None (occurrence: None)
  Receive Date: 20100708
  Receipt Date: 20061220
  Transmission Date: 20110219
  Serious: No
  Sender: FDA-Public Use
  Company Number: US-PFIZER INC-2007001048

PATIENT
  Sex: Female
  Weight: 78.02 kg

DRUGS (10)
  1. CHANTIX [Suspect]
     Indication: SMOKING CESSATION THERAPY
     Dates: start: 20060901, end: 20060101
  2. GLUCOPHAGE [Concomitant]
  3. LOTENSIN [Concomitant]
  4. LIPITOR [Concomitant]
  5. EFFEXOR [Concomitant]
  6. LEVOTHYROXINE SODIUM [Concomitant]
  7. VITAMINS [Concomitant]
  8. FISH OIL [Concomitant]
  9. CITRUCEL [Concomitant]
  10. LIBRAX [Concomitant]

REACTIONS (1)
  - DRUG INEFFECTIVE [None]
